FAERS Safety Report 25699734 (Version 1)
Quarter: 2025Q3

REPORT INFORMATION
  Report Type: Spontaneous
  Country: US (occurrence: US)
  Receive Date: 20250819
  Receipt Date: 20250819
  Transmission Date: 20251020
  Serious: No
  Sender: COSETTE PHARMACEUTICALS INC
  Company Number: US-COSETTE-CP2025US000774

PATIENT
  Age: 22 Year
  Sex: Male
  Weight: 68 kg

DRUGS (3)
  1. KETOCONAZOLE [Suspect]
     Active Substance: KETOCONAZOLE
     Indication: Dry skin
     Route: 061
     Dates: start: 2025, end: 202507
  2. KETOCONAZOLE [Suspect]
     Active Substance: KETOCONAZOLE
     Indication: Dandruff
  3. PANTOPRAZOLE [Concomitant]
     Active Substance: PANTOPRAZOLE
     Indication: Gastritis
     Route: 065

REACTIONS (2)
  - Urine cannabinoids increased [Unknown]
  - Therapy interrupted [None]

NARRATIVE: CASE EVENT DATE: 20250601
